APPROVED DRUG PRODUCT: OXISTAT
Active Ingredient: OXICONAZOLE NITRATE
Strength: EQ 1% BASE
Dosage Form/Route: LOTION;TOPICAL
Application: N020209 | Product #001
Applicant: ANI PHARMACEUTICALS INC
Approved: Sep 30, 1992 | RLD: Yes | RS: Yes | Type: RX